FAERS Safety Report 12874797 (Version 1)
Quarter: 2016Q4

REPORT INFORMATION
  Report Type: Spontaneous
  Country: CA (occurrence: CA)
  Receive Date: 20161022
  Receipt Date: 20161022
  Transmission Date: 20170207
  Serious: Yes (Other)
  Sender: FDA-Public Use
  Company Number: CA-ACCORD-045032

PATIENT
  Age: 50 Year
  Sex: Male

DRUGS (5)
  1. CISPLATIN. [Suspect]
     Active Substance: CISPLATIN
     Indication: HEPATIC LESION
  2. SUNITINIB [Suspect]
     Active Substance: SUNITINIB
     Indication: HEPATIC LESION
  3. STREPTOZOCIN [Suspect]
     Active Substance: STREPTOZOCIN
     Indication: HEPATIC LESION
  4. ETOPOSIDE. [Suspect]
     Active Substance: ETOPOSIDE
     Indication: HEPATIC LESION
  5. DOXORUBICIN [Suspect]
     Active Substance: DOXORUBICIN
     Indication: HEPATIC LESION

REACTIONS (1)
  - Treatment failure [Unknown]
